FAERS Safety Report 17001569 (Version 1)
Quarter: 2019Q4

REPORT INFORMATION
  Report Type: Spontaneous
  Country: US (occurrence: US)
  Receive Date: 20191106
  Receipt Date: 20191106
  Transmission Date: 20200122
  Serious: No
  Sender: FDA-Public Use
  Company Number: US-TEVA-2019-US-1131596

PATIENT
  Sex: Female

DRUGS (2)
  1. CABER ACICLOVIR [Suspect]
     Active Substance: ACYCLOVIR
     Indication: GENITAL HERPES
     Dosage: 400 MILLIGRAM DAILY; CAMBER^S ACYCLOVIR IN THE EVENING
     Dates: start: 201907
  2. TEVA ACICLOVIR [Suspect]
     Active Substance: ACYCLOVIR
     Indication: GENITAL HERPES
     Dosage: 400 MILLIGRAM DAILY; TEVA^S ACYCLOVIR IN THE MORNING
     Dates: start: 201907

REACTIONS (2)
  - Therapeutic product effect incomplete [Unknown]
  - Product substitution issue [Unknown]

NARRATIVE: CASE EVENT DATE: 201907
